FAERS Safety Report 7785492-2 (Version None)
Quarter: 2011Q3

REPORT INFORMATION
  Report Type: 
  Country: None (occurrence: None)
  Receive Date: 20110929
  Receipt Date: 20110926
  Transmission Date: 20111222
  Serious: Yes (Death, Hospitalization)
  Sender: FDA-Public Use
  Company Number: PHHY2011PA85331

PATIENT
  Age: 65 Year
  Sex: Male

DRUGS (4)
  1. PREDNISONE [Suspect]
     Indication: ARTHRALGIA
     Dosage: 1 DF, QD
     Route: 048
  2. PREDNISONE [Suspect]
     Dosage: 0.25 DF, QD
     Route: 048
  3. PREDNISONE [Suspect]
     Dosage: 0.5 DF, QD
     Route: 048
  4. METHYLPREDNISOLONE [Suspect]
     Dosage: 40 MG, UNK
     Route: 042

REACTIONS (9)
  - BLISTER [None]
  - ERYTHEMA [None]
  - SKIN EXFOLIATION [None]
  - PYREXIA [None]
  - TACHYCARDIA [None]
  - SKIN LESION [None]
  - PRURITUS GENERALISED [None]
  - DEATH [None]
  - TOXIC EPIDERMAL NECROLYSIS [None]
